FAERS Safety Report 9098628 (Version 1)
Quarter: 2013Q1

REPORT INFORMATION
  Report Type: Spontaneous
  Country: US (occurrence: US)
  Receive Date: 20130213
  Receipt Date: 20130213
  Transmission Date: 20140127
  Serious: No
  Sender: FDA-Public Use
  Company Number: US-009507513-1302USA003605

PATIENT
  Sex: Female

DRUGS (3)
  1. COZAAR [Suspect]
     Indication: BLOOD PRESSURE
     Dosage: 50 MG, QD
     Route: 048
     Dates: start: 2006, end: 201208
  2. COZAAR [Suspect]
     Indication: DIABETES MELLITUS
  3. ATENOLOL [Concomitant]

REACTIONS (3)
  - Nasal congestion [Not Recovered/Not Resolved]
  - Pain in extremity [Not Recovered/Not Resolved]
  - Drug ineffective [Not Recovered/Not Resolved]
